FAERS Safety Report 9514508 (Version 1)
Quarter: 2013Q3

REPORT INFORMATION
  Report Type: Spontaneous
  Country: IN (occurrence: IN)
  Receive Date: 20130911
  Receipt Date: 20130911
  Transmission Date: 20140515
  Serious: Yes (Other)
  Sender: FDA-Public Use
  Company Number: IN-SUN PHARMACEUTICAL INDUSTRIES LTD-2013SUN04608

PATIENT
  Age: 56 Year
  Sex: Male

DRUGS (1)
  1. VALPROIC ACID CAPSULES, USP 250 MG [Suspect]
     Indication: GRAND MAL CONVULSION
     Dosage: 400 MG, BID
     Route: 065

REACTIONS (4)
  - Gaze palsy [Recovering/Resolving]
  - Toxicity to various agents [Recovering/Resolving]
  - Parkinsonism [Recovering/Resolving]
  - Hyperammonaemia [Recovering/Resolving]
